FAERS Safety Report 4558016-0 (Version None)
Quarter: 2005Q1

REPORT INFORMATION
  Report Type: 
  Country: None (occurrence: None)
  Receive Date: 20050121
  Receipt Date: 20040521
  Transmission Date: 20050727
  Serious: No
  Sender: FDA-Public Use
  Company Number: US-BRISTOL-MYERS SQUIBB COMPANY-12592903

PATIENT
  Age: 57 Year
  Sex: Female
  Weight: 57 kg

DRUGS (6)
  1. SERZONE [Suspect]
     Indication: MIGRAINE
     Dosage: HAD DECREASED DOSE BY 25MG EACH WEEK
     Route: 048
  2. SERZONE [Suspect]
     Indication: STRESS
     Dosage: HAD DECREASED DOSE BY 25MG EACH WEEK
     Route: 048
  3. THYROID TAB [Concomitant]
  4. PROGESTERONE [Concomitant]
  5. BLACK COHOSH [Concomitant]
  6. RELPAX [Concomitant]

REACTIONS (2)
  - ANGER [None]
  - MIGRAINE [None]
